APPROVED DRUG PRODUCT: DAPSONE
Active Ingredient: DAPSONE
Strength: 100MG
Dosage Form/Route: TABLET;ORAL
Application: A203887 | Product #002 | TE Code: AB
Applicant: SOLIS PHARMACEUTICALS INC
Approved: May 6, 2016 | RLD: No | RS: No | Type: RX